FAERS Safety Report 4704235-X (Version None)
Quarter: 2005Q2

REPORT INFORMATION
  Report Type: 
  Country: None (occurrence: None)
  Receive Date: 20050628
  Receipt Date: 20050615
  Transmission Date: 20051028
  Serious: Yes (Other)
  Sender: FDA-Public Use
  Company Number: 2005089077

PATIENT
  Age: 53 Year
  Sex: Male
  Weight: 113.3993 kg

DRUGS (5)
  1. VIBRA-TABS [Suspect]
     Indication: LYME DISEASE
     Dosage: 400 MG (200 MG, 2 IN 1 D)
     Dates: start: 20050101
  2. DOXYCYCLINE [Suspect]
     Indication: LYME DISEASE
     Dosage: 400 MG (200 MG, 2 IN 1 D)
     Dates: start: 20050101
  3. DIAZEPAM [Concomitant]
  4. VICOPROFEN [Concomitant]
  5. MESTINON [Concomitant]

REACTIONS (6)
  - BACTERIAL INFECTION [None]
  - CYST [None]
  - DRUG INEFFECTIVE [None]
  - FALL [None]
  - GENERAL PHYSICAL HEALTH DETERIORATION [None]
  - PHARMACEUTICAL PRODUCT COMPLAINT [None]
